FAERS Safety Report 7326930-9 (Version None)
Quarter: 2011Q1

REPORT INFORMATION
  Report Type: 
  Country: None (occurrence: None)
  Receive Date: 20110302
  Receipt Date: 20110225
  Transmission Date: 20110831
  Serious: Yes (Hospitalization, Other)
  Sender: FDA-Public Use
  Company Number: US-ABBOTT-11P-163-0708046-00

PATIENT
  Sex: Male
  Weight: 57.204 kg

DRUGS (2)
  1. HUMIRA [Suspect]
     Indication: CROHN'S DISEASE
     Route: 058
     Dates: start: 20110103
  2. MULTI-VITAMIN [Concomitant]
     Indication: VITAMIN SUPPLEMENTATION
     Dosage: NOT REPORTED.

REACTIONS (7)
  - ENTERITIS [None]
  - APPENDICECTOMY [None]
  - DECREASED APPETITE [None]
  - WHITE BLOOD CELL COUNT INCREASED [None]
  - ABDOMINAL DISCOMFORT [None]
  - ABDOMINAL PAIN [None]
  - GASTRECTOMY [None]
